FAERS Safety Report 10190579 (Version 1)
Quarter: 2014Q2

REPORT INFORMATION
  Report Type: Report from Study
  Country: US (occurrence: US)
  Receive Date: 20140523
  Receipt Date: 20140523
  Transmission Date: 20141212
  Serious: Yes (Other)
  Sender: FDA-Public Use
  Company Number: US-ROCHE-1405718

PATIENT
  Sex: Female
  Weight: 115.32 kg

DRUGS (4)
  1. RITUXAN [Suspect]
     Indication: NEUROMYELITIS OPTICA
     Route: 042
     Dates: start: 201402
  2. SOLU-MEDROL [Concomitant]
     Route: 042
  3. BENADRYL (UNITED STATES) [Concomitant]
  4. TYLENOL [Concomitant]

REACTIONS (6)
  - Systemic mycosis [Not Recovered/Not Resolved]
  - Anaemia macrocytic [Not Recovered/Not Resolved]
  - Sinusitis [Recovered/Resolved]
  - Blood creatinine decreased [Recovering/Resolving]
  - Blood bilirubin decreased [Recovering/Resolving]
  - Off label use [Unknown]
